FAERS Safety Report 13783055 (Version 1)
Quarter: 2017Q3

REPORT INFORMATION
  Report Type: Spontaneous
  Country: FR (occurrence: FR)
  Receive Date: 20170724
  Receipt Date: 20170724
  Transmission Date: 20171127
  Serious: Yes (Other)
  Sender: FDA-Public Use
  Company Number: FR-ROCHE-1966774

PATIENT
  Age: 58 Year
  Sex: Female

DRUGS (8)
  1. 5-FU [Concomitant]
     Active Substance: FLUOROURACIL
  2. OXALIPLATIN. [Concomitant]
     Active Substance: OXALIPLATIN
  3. CALCIUM LEVOFOLINATE [Suspect]
     Active Substance: LEVOLEUCOVORIN CALCIUM
     Indication: ADENOCARCINOMA OF COLON
     Route: 042
     Dates: start: 20151206, end: 20170201
  4. ZOPHREN [Suspect]
     Active Substance: ONDANSETRON
     Indication: ADENOCARCINOMA OF COLON
     Route: 042
     Dates: start: 20151221, end: 20170201
  5. FOLINIC ACID [Concomitant]
     Active Substance: LEUCOVORIN
  6. METHYLPREDNISOLONE. [Concomitant]
     Active Substance: METHYLPREDNISOLONE
     Indication: ADENOCARCINOMA OF COLON
     Route: 042
     Dates: start: 20151221, end: 20170201
  7. IRINOTECAN [Concomitant]
     Active Substance: IRINOTECAN
  8. AVASTIN [Suspect]
     Active Substance: BEVACIZUMAB
     Indication: ADENOCARCINOMA OF COLON
     Route: 042
     Dates: start: 20151221, end: 20170201

REACTIONS (5)
  - Back pain [Recovered/Resolved]
  - Vomiting [Recovered/Resolved]
  - Hypersensitivity [Recovered/Resolved]
  - Abdominal pain [Recovered/Resolved]
  - Hyperhidrosis [Recovered/Resolved]

NARRATIVE: CASE EVENT DATE: 20170103
